FAERS Safety Report 9954644 (Version 1)
Quarter: 2014Q1

REPORT INFORMATION
  Report Type: Report from Study
  Country: US (occurrence: US)
  Receive Date: 20140304
  Receipt Date: 20140304
  Transmission Date: 20141002
  Serious: No
  Sender: FDA-Public Use
  Company Number: US-ABBVIE-13P-163-1083361-00

PATIENT
  Age: 36 Year
  Sex: Female

DRUGS (8)
  1. HUMIRA [Suspect]
     Indication: RHEUMATOID ARTHRITIS
     Dates: start: 20130413
  2. METHOTREXATE [Concomitant]
     Indication: RHEUMATOID ARTHRITIS
     Dosage: 2.5 MG, 8 TABS ON THURSDAY
  3. LOSARTAN/HCTZ GT [Concomitant]
     Indication: BLOOD PRESSURE
     Dosage: 100/25 MG DAILY
  4. FOLIC ACID [Concomitant]
     Indication: PRODUCT USED FOR UNKNOWN INDICATION
  5. LANSOPRAZOLE [Concomitant]
     Indication: GASTROOESOPHAGEAL REFLUX DISEASE
  6. OXYCODONE AND ACETAMINOPHEN [Concomitant]
     Indication: PAIN
     Dosage: 10/325 MG, 1 EVERY 6 HOURS
  7. ALIGN [Concomitant]
     Indication: PRODUCT USED FOR UNKNOWN INDICATION
  8. NIGHT TIME SLEEP [Concomitant]
     Indication: INSOMNIA
     Dosage: 50MG AT HS

REACTIONS (2)
  - Back pain [Not Recovered/Not Resolved]
  - Arthralgia [Not Recovered/Not Resolved]
